FAERS Safety Report 6308792-1 (Version None)
Quarter: 2009Q3

REPORT INFORMATION
  Report Type: 
  Country: None (occurrence: None)
  Receive Date: 20090813
  Receipt Date: 20081009
  Transmission Date: 20100115
  Serious: No
  Sender: FDA-Public Use
  Company Number: US-ALLERGAN-0808185US

PATIENT
  Age: 59 Year
  Sex: Male

DRUGS (3)
  1. COMBIGAN [Suspect]
     Indication: OPEN ANGLE GLAUCOMA
     Dosage: UNK, BID
     Route: 047
  2. COMBIGAN [Suspect]
     Dosage: UNK, QD
     Route: 047
  3. COMBIGAN [Suspect]
     Dosage: UNK, BID
     Route: 047

REACTIONS (2)
  - BURNING SENSATION [None]
  - DIZZINESS [None]
